FAERS Safety Report 9580731 (Version 1)
Quarter: 2013Q4

REPORT INFORMATION
  Report Type: Spontaneous
  Country: IT (occurrence: IT)
  Receive Date: 20131002
  Receipt Date: 20131002
  Transmission Date: 20140711
  Serious: Yes (Other)
  Sender: FDA-Public Use
  Company Number: IT-ELI_LILLY_AND_COMPANY-IT201309007618

PATIENT
  Age: 40 Year
  Sex: Female

DRUGS (3)
  1. XERISTAR [Suspect]
     Indication: DEPRESSION
     Dosage: 30 MG, QD
     Route: 048
     Dates: start: 201309, end: 201309
  2. LEXOTAN [Concomitant]
     Indication: ANXIETY
     Dosage: 3 MG, UNKNOWN
     Route: 065
     Dates: start: 201206
  3. TRITTICO [Concomitant]
     Indication: SLEEP DISORDER
     Dosage: 75 MG, UNKNOWN
     Route: 065
     Dates: start: 201201

REACTIONS (2)
  - Tongue discolouration [Recovering/Resolving]
  - Dysgeusia [Recovering/Resolving]
